FAERS Safety Report 16625009 (Version 7)
Quarter: 2021Q4

REPORT INFORMATION
  Report Type: Spontaneous
  Country: US (occurrence: US)
  Receive Date: 20190724
  Receipt Date: 20211005
  Transmission Date: 20220303
  Serious: Yes (Hospitalization, Other)
  Sender: FDA-Public Use
  Company Number: US-PFIZER INC-2019314280

PATIENT
  Age: 62 Year
  Sex: Female
  Weight: 59.86 kg

DRUGS (2)
  1. LYRICA [Suspect]
     Active Substance: PREGABALIN
     Indication: Neuralgia
     Dosage: 100 MG, 3X/DAY
  2. LYRICA [Suspect]
     Active Substance: PREGABALIN
     Indication: Fibromyalgia
     Dosage: 150 MG, 2X/DAY
     Route: 048

REACTIONS (5)
  - Feeling abnormal [Unknown]
  - Mental impairment [Unknown]
  - Speech disorder [Unknown]
  - Malaise [Unknown]
  - Memory impairment [Unknown]
